FAERS Safety Report 19209073 (Version 2)
Quarter: 2021Q2

REPORT INFORMATION
  Report Type: Spontaneous
  Country: US (occurrence: US)
  Receive Date: 20210503
  Receipt Date: 20210506
  Transmission Date: 20210717
  Serious: No
  Sender: FDA-Public Use
  Company Number: US-FRESENIUS KABI-FK202104421

PATIENT
  Sex: Male
  Weight: 144 kg

DRUGS (1)
  1. XYLOCAINE WITH EPINEPHRINE [Suspect]
     Active Substance: EPINEPHRINE BITARTRATE\LIDOCAINE HYDROCHLORIDE
     Indication: LOCAL ANAESTHESIA
     Dosage: 9 ML TOTAL INJECTION
     Route: 065
     Dates: start: 20210421, end: 20210421

REACTIONS (4)
  - Procedural haemorrhage [Unknown]
  - Procedural complication [Unknown]
  - Drug effect less than expected [Unknown]
  - Therapeutic product effect decreased [Unknown]

NARRATIVE: CASE EVENT DATE: 20210421
